FAERS Safety Report 7157350-8 (Version None)
Quarter: 2010Q4

REPORT INFORMATION
  Report Type: 
  Country: None (occurrence: None)
  Receive Date: 20101214
  Receipt Date: 20101124
  Transmission Date: 20110411
  Serious: No
  Sender: FDA-Public Use
  Company Number: US-PFIZER INC-US-WYE-H18388310

PATIENT
  Age: 22 Year
  Sex: Female
  Weight: 54.4 kg

DRUGS (2)
  1. ADVIL [Suspect]
     Indication: PAIN IN EXTREMITY
     Dosage: 2.0 DF, 1X/4 HR
     Route: 048
     Dates: start: 20101024
  2. ADVIL [Suspect]
     Indication: PYREXIA

REACTIONS (1)
  - DRUG INEFFECTIVE [None]
